FAERS Safety Report 5899599-8 (Version None)
Quarter: 2008Q3

REPORT INFORMATION
  Report Type: 
  Country: None (occurrence: None)
  Receive Date: 20080926
  Receipt Date: 20080924
  Transmission Date: 20090109
  Serious: Yes (Death)
  Sender: FDA-Public Use
  Company Number: PHHY2008SE22335

PATIENT
  Sex: Male

DRUGS (6)
  1. EXELON [Suspect]
     Dosage: 9 MG/ DAY
     Dates: end: 20080714
  2. AMLODIPINE [Suspect]
     Dosage: UNK
     Dates: end: 20080714
  3. ESIDRIX [Suspect]
     Dosage: 12 MG/ DAY
     Dates: end: 20080713
  4. TOLTERODINE TARTRATE [Concomitant]
  5. PROPAVAN [Concomitant]
  6. ATENOLOL [Concomitant]

REACTIONS (3)
  - ABDOMINAL PAIN [None]
  - PANCREATITIS [None]
  - RESPIRATORY FAILURE [None]
